FAERS Safety Report 4483635-X (Version None)
Quarter: 2004Q4

REPORT INFORMATION
  Report Type: 
  Country: None (occurrence: None)
  Receive Date: 20041021
  Receipt Date: 20041021
  Transmission Date: 20050328
  Serious: Yes (Hospitalization)
  Sender: FDA-Public Use
  Company Number: None

PATIENT
  Age: 49 Year
  Sex: Male
  Weight: 84.2 kg

DRUGS (20)
  1. LISINOPRIL [Suspect]
  2. OXYCODONE AND ACETAMINOPHEN [Concomitant]
  3. SODIUM POLYSTYRENE SULFONATE SUSP [Concomitant]
  4. ACETAMINOPHEN (INPT-UD) TAB [Concomitant]
  5. FUROSEMIDE [Concomitant]
  6. INSULIN NOVOLIN 70/30 INJ [Concomitant]
  7. DESIPRAMINE TAB [Concomitant]
  8. DIPYRIDAMOLE TAB [Concomitant]
  9. ALBUTEROL / IPRATROPIUM [Concomitant]
  10. MULTIVITAMINS/ZINC (CENTRUM) TAB [Concomitant]
  11. METOPROLOL TAB [Concomitant]
  12. NITROGLYCERIN [Concomitant]
  13. OMEPRAZOLE [Concomitant]
  14. CLOPIDOGREL BISULFATE TAB [Concomitant]
  15. NICOTINE [Concomitant]
  16. HUMULIN R [Concomitant]
  17. SIMVASTATIN TAB [Concomitant]
  18. NITROGLYCERIN [Concomitant]
  19. DIVALPROEX TAB, EC (DELAYED RELEASE) [Concomitant]
  20. ASPIRIN [Concomitant]

REACTIONS (1)
  - HYPERKALAEMIA [None]
